FAERS Safety Report 22209216 (Version 2)
Quarter: 2023Q2

REPORT INFORMATION
  Report Type: Report from Study
  Country: CA (occurrence: CA)
  Receive Date: 20230413
  Receipt Date: 20230421
  Transmission Date: 20230721
  Serious: Yes (Other)
  Sender: FDA-Public Use
  Company Number: CA-JNJFOC-20230400521

PATIENT
  Age: 59 Year
  Sex: Female

DRUGS (13)
  1. RYBREVANT [Suspect]
     Active Substance: AMIVANTAMAB-VMJW
     Indication: Non-small cell lung cancer
     Dosage: WEEK 1 DAY 1 - 350 MG AND WEEK 1 DAY 2 - 700 MG
     Route: 042
     Dates: start: 20230330
  2. RYBREVANT [Suspect]
     Active Substance: AMIVANTAMAB-VMJW
     Dosage: WEEK 1 DAY 1 - 350 MG
     Route: 042
     Dates: start: 20230405
  3. RYBREVANT [Suspect]
     Active Substance: AMIVANTAMAB-VMJW
     Dosage: WEEK 1 DAY 2 - 700 MG
     Route: 042
     Dates: start: 20230406
  4. DIPHENHYDRAMINE HYDROCHLORIDE [Suspect]
     Active Substance: DIPHENHYDRAMINE HYDROCHLORIDE
     Indication: Product used for unknown indication
     Route: 042
  5. ACETAMINOPHEN [Concomitant]
     Active Substance: ACETAMINOPHEN
     Route: 048
  6. DEXAMETHASONE [Concomitant]
     Active Substance: DEXAMETHASONE
     Route: 042
  7. RAMIPRIL [Concomitant]
     Active Substance: RAMIPRIL
  8. LEVOTHYROXINE [Concomitant]
     Active Substance: LEVOTHYROXINE
  9. PANTOPRAZOLE [Concomitant]
     Active Substance: PANTOPRAZOLE
  10. FOLIC ACID [Concomitant]
     Active Substance: FOLIC ACID
  11. ERGOCALCIFEROL [Concomitant]
     Active Substance: ERGOCALCIFEROL
  12. SENOKOT [Concomitant]
     Active Substance: SENNOSIDES
  13. NOVORAPID [Concomitant]
     Active Substance: INSULIN ASPART

REACTIONS (9)
  - Oxygen saturation decreased [Recovering/Resolving]
  - Infusion related reaction [Unknown]
  - Somnolence [Unknown]
  - Dyspnoea [Recovered/Resolved]
  - Constipation [Unknown]
  - Nausea [Unknown]
  - Dry skin [Unknown]
  - Contusion [Unknown]
  - Peripheral swelling [Unknown]

NARRATIVE: CASE EVENT DATE: 20230330
